FAERS Safety Report 6482388-3 (Version None)
Quarter: 2009Q4

REPORT INFORMATION
  Report Type: 
  Country: None (occurrence: None)
  Receive Date: 20091208
  Receipt Date: 20090429
  Transmission Date: 20100525
  Serious: No
  Sender: FDA-Public Use
  Company Number: US-AMGEN-TCS345119

PATIENT
  Sex: Male

DRUGS (2)
  1. ENBREL [Suspect]
     Indication: RHEUMATOID ARTHRITIS
  2. SULFASALAZINE [Concomitant]

REACTIONS (4)
  - BODY TEMPERATURE INCREASED [None]
  - CHILLS [None]
  - FATIGUE [None]
  - SKIN DISCOLOURATION [None]
